FAERS Safety Report 13598381 (Version 2)
Quarter: 2017Q2

REPORT INFORMATION
  Report Type: Spontaneous
  Country: US (occurrence: US)
  Receive Date: 20170531
  Receipt Date: 20170622
  Transmission Date: 20170830
  Serious: Yes (Other)
  Sender: FDA-Public Use
  Company Number: US-BAYER-2017-100616

PATIENT
  Age: 45 Year
  Sex: Female
  Weight: 89.8 kg

DRUGS (7)
  1. NORETHINDRONE ACETATE. [Concomitant]
     Active Substance: NORETHINDRONE ACETATE
     Dosage: 1 DF, QD
     Route: 048
  2. MULTIVITAMIN [Concomitant]
     Active Substance: VITAMINS
  3. SERTRALINE HYDROCHLORIDE. [Concomitant]
     Active Substance: SERTRALINE HYDROCHLORIDE
     Dosage: 0.5 DF, QD
     Route: 048
  4. MIRENA [Suspect]
     Active Substance: LEVONORGESTREL
     Indication: CONTRACEPTION
     Dosage: 20 MCG/24HR, CONT
     Route: 015
     Dates: start: 20170412, end: 20170524
  5. MIRENA [Suspect]
     Active Substance: LEVONORGESTREL
     Indication: MENORRHAGIA
  6. FISH OIL [Concomitant]
     Active Substance: FISH OIL
  7. NASALCROM [Concomitant]
     Active Substance: CROMOLYN SODIUM
     Dosage: 1 SPRAY IN EACH NOSTRIL 3-4 TIMES DAILYM, EVERY 4-6 HOURS

REACTIONS (7)
  - Gastrointestinal motility disorder [None]
  - Device dislocation [None]
  - Constipation [None]
  - Menorrhagia [Recovered/Resolved]
  - Genital haemorrhage [None]
  - Breast pain [Recovered/Resolved]
  - Uterine spasm [None]

NARRATIVE: CASE EVENT DATE: 2017
